FAERS Safety Report 11827602 (Version 1)
Quarter: 2015Q4

REPORT INFORMATION
  Report Type: Spontaneous
  Country: US (occurrence: US)
  Receive Date: 20151211
  Receipt Date: 20151211
  Transmission Date: 20160305
  Serious: No
  Sender: FDA-Public Use
  Company Number: US-WATSON-2015-20906

PATIENT
  Age: 42 Year
  Sex: Female

DRUGS (4)
  1. LILETTA [Suspect]
     Active Substance: LEVONORGESTREL
     Indication: UTERINE HAEMORRHAGE
     Dosage: UNK, UNKNOWN
     Route: 015
     Dates: end: 20150928
  2. LILETTA [Suspect]
     Active Substance: LEVONORGESTREL
     Indication: INTRA-ABDOMINAL HAEMORRHAGE
  3. MAGNESIUM [Concomitant]
     Active Substance: MAGNESIUM
     Indication: PRODUCT USED FOR UNKNOWN INDICATION
  4. VITAMIN D                          /00107901/ [Concomitant]
     Active Substance: ERGOCALCIFEROL
     Indication: PRODUCT USED FOR UNKNOWN INDICATION

REACTIONS (6)
  - Vomiting [Not Recovered/Not Resolved]
  - Acne [Not Recovered/Not Resolved]
  - Blood pressure increased [Recovered/Resolved]
  - Alopecia [Recovered/Resolved]
  - Eczema [Recovered/Resolved]
  - Gastrooesophageal reflux disease [Not Recovered/Not Resolved]
